FAERS Safety Report 25310361 (Version 1)
Quarter: 2025Q2

REPORT INFORMATION
  Report Type: Spontaneous
  Country: US (occurrence: US)
  Receive Date: 20250514
  Receipt Date: 20250514
  Transmission Date: 20250716
  Serious: Yes (Other)
  Sender: COOPERSURGICAL
  Company Number: US-COOPERSURGICAL, INC.-2025CPS003694

PATIENT
  Sex: Female
  Weight: 82.54 kg

DRUGS (1)
  1. PARAGARD T 380A [Suspect]
     Active Substance: COPPER
     Indication: Contraception
     Route: 015
     Dates: start: 20080201, end: 202005

REACTIONS (15)
  - Uterine cancer [Unknown]
  - Uterine disorder [Unknown]
  - Reproductive complication associated with device [Not Recovered/Not Resolved]
  - Uterine injury [Not Recovered/Not Resolved]
  - Embedded device [Recovered/Resolved]
  - Uterine scar [Not Recovered/Not Resolved]
  - Emotional disorder [Unknown]
  - Procedural nausea [Recovered/Resolved]
  - Procedural vomiting [Recovered/Resolved]
  - Procedural pain [Recovered/Resolved]
  - Complication of device insertion [Recovered/Resolved]
  - Abnormal uterine bleeding [Unknown]
  - Dysmenorrhoea [Not Recovered/Not Resolved]
  - Device use issue [Recovered/Resolved]
  - Off label use [Unknown]

NARRATIVE: CASE EVENT DATE: 20080101
